FAERS Safety Report 11849456 (Version 1)
Quarter: 2015Q4

REPORT INFORMATION
  Report Type: Spontaneous
  Country: US (occurrence: None)
  Receive Date: 20151217
  Receipt Date: 20151217
  Transmission Date: 20160305
  Serious: No
  Sender: FDA-Public Use
  Company Number: None

PATIENT
  Age: 45 Year
  Sex: Female
  Weight: 86.1 kg

DRUGS (3)
  1. CARBOPLATIN. [Suspect]
     Active Substance: CARBOPLATIN
     Dates: end: 20151113
  2. CISPLATIN. [Suspect]
     Active Substance: CISPLATIN
     Dates: end: 20150706
  3. TAXOL [Suspect]
     Active Substance: PACLITAXEL
     Dates: end: 20151113

REACTIONS (3)
  - Epistaxis [None]
  - Platelet count decreased [None]
  - Urinary tract infection [None]

NARRATIVE: CASE EVENT DATE: 20151211
